FAERS Safety Report 4650899-9 (Version None)
Quarter: 2005Q2

REPORT INFORMATION
  Report Type: 
  Country: None (occurrence: None)
  Receive Date: 20050429
  Receipt Date: 20050420
  Transmission Date: 20051028
  Serious: Yes (Hospitalization, Other)
  Sender: FDA-Public Use
  Company Number: HQWYE170720APR05

PATIENT
  Age: 60 Year
  Sex: Female

DRUGS (4)
  1. AMIODARONE HCL [Suspect]
     Indication: ARRHYTHMIA
     Dosage: 200 MG 1X PER 1 DAY
     Route: 048
  2. NITROGLYCERIN [Concomitant]
  3. AMOXICILLIN [Concomitant]
  4. FLUCLOXACILLIN (FLUCLOXACILLIN) [Concomitant]

REACTIONS (3)
  - NAUSEA [None]
  - PERICARDITIS [None]
  - PLEURAL EFFUSION [None]
